FAERS Safety Report 19432646 (Version 1)
Quarter: 2021Q2

REPORT INFORMATION
  Report Type: Spontaneous
  Country: US (occurrence: US)
  Receive Date: 20210617
  Receipt Date: 20210617
  Transmission Date: 20210717
  Serious: Yes (Hospitalization)
  Sender: FDA-Public Use
  Company Number: US-TEVA-2021-US-1922503

PATIENT
  Age: 72 Year
  Sex: Female

DRUGS (6)
  1. CALCIUM POLYSTYRENE [CALCIUM POLYSTYRENE SULFONATE] [Suspect]
     Active Substance: CALCIUM POLYSTYRENE SULFONATE
     Indication: HYPERKALAEMIA
     Route: 065
  2. ALBUTEROL. [Suspect]
     Active Substance: ALBUTEROL
     Indication: HYPERKALAEMIA
     Route: 065
  3. CALCIUM GLUCONATE. [Suspect]
     Active Substance: CALCIUM GLUCONATE
     Indication: HYPERKALAEMIA
     Route: 065
  4. POTASSIUM CHLORIDE. [Suspect]
     Active Substance: POTASSIUM CHLORIDE
     Indication: INTENTIONAL OVERDOSE
     Dosage: SUSTAINED RELEASE
     Route: 048
  5. FUROSEMIDE. [Suspect]
     Active Substance: FUROSEMIDE
     Indication: HYPERKALAEMIA
     Route: 065
  6. REGULAR INSULIN [Suspect]
     Active Substance: INSULIN NOS
     Indication: HYPERKALAEMIA
     Route: 065

REACTIONS (6)
  - Hyperkalaemia [Recovered/Resolved]
  - Ileus [Recovered/Resolved]
  - Haemodynamic instability [Recovered/Resolved]
  - Therapy non-responder [Unknown]
  - Intentional overdose [Unknown]
  - Electrocardiogram abnormal [Recovered/Resolved]
